FAERS Safety Report 18899480 (Version 1)
Quarter: 2021Q1

REPORT INFORMATION
  Report Type: Spontaneous
  Country: CN (occurrence: CN)
  Receive Date: 20210216
  Receipt Date: 20210216
  Transmission Date: 20210420
  Serious: Yes (Other)
  Sender: FDA-Public Use
  Company Number: CN-PFIZER INC-2021117325

PATIENT
  Age: 79 Year
  Sex: Male
  Weight: 69 kg

DRUGS (2)
  1. VFEND [Suspect]
     Active Substance: VORICONAZOLE
     Indication: PENICILLIUM INFECTION
     Dosage: 0.2 G, 2X/DAY
     Route: 048
     Dates: start: 20210123, end: 20210124
  2. VFEND [Suspect]
     Active Substance: VORICONAZOLE
     Dosage: 0.150 G, 2X/DAY
     Route: 048
     Dates: start: 20210125, end: 20210128

REACTIONS (4)
  - Drug level increased [Unknown]
  - Off label use [Unknown]
  - Insomnia [Recovering/Resolving]
  - Agitation [Recovering/Resolving]

NARRATIVE: CASE EVENT DATE: 20210123
